FAERS Safety Report 14732121 (Version 1)
Quarter: 2018Q2

REPORT INFORMATION
  Report Type: Spontaneous
  Country: ES (occurrence: ES)
  Receive Date: 20180409
  Receipt Date: 20180409
  Transmission Date: 20180711
  Serious: Yes (Life-Threatening, Hospitalization)
  Sender: FDA-Public Use
  Company Number: ES-ROCHE-2099918

PATIENT
  Age: 73 Year
  Sex: Female

DRUGS (6)
  1. CEFTRIAXONE. [Suspect]
     Active Substance: CEFTRIAXONE
     Indication: NOCARDIOSIS
     Route: 042
     Dates: start: 20160918, end: 20171005
  2. METOCLOPRAMIDA [Concomitant]
     Active Substance: METOCLOPRAMIDE HYDROCHLORIDE
     Route: 042
  3. SOLTRIM [Suspect]
     Active Substance: SULFAMETHOXAZOLE\TRIMETHOPRIM
     Indication: NOCARDIOSIS
     Dosage: 160 MG/800 MG
     Route: 042
     Dates: start: 20170918, end: 20171005
  4. METILPREDNISOLONA [Concomitant]
     Active Substance: METHYLPREDNISOLONE
     Indication: NOCARDIOSIS
     Route: 042
     Dates: start: 20170626, end: 20171011
  5. CYMEVENE [Suspect]
     Active Substance: GANCICLOVIR
     Indication: NOCARDIOSIS
     Route: 042
     Dates: start: 20170918, end: 20171005
  6. BEMIPARINA SODICA [Concomitant]
     Route: 058
     Dates: start: 20170916

REACTIONS (1)
  - Pancytopenia [Recovered/Resolved]

NARRATIVE: CASE EVENT DATE: 20171007
